FAERS Safety Report 9303355 (Version 1)
Quarter: 2013Q2

REPORT INFORMATION
  Report Type: Spontaneous
  Country: DK (occurrence: FR)
  Receive Date: 20130522
  Receipt Date: 20130522
  Transmission Date: 20140414
  Serious: Yes (Death)
  Sender: FDA-Public Use
  Company Number: FR-FRI-1000045294

PATIENT
  Age: 92 Year
  Sex: Male

DRUGS (9)
  1. ESCITALOPRAM [Suspect]
     Dosage: 1 DF
     Route: 048
     Dates: start: 201201, end: 20130402
  2. KARDEGIC [Interacting]
     Dosage: 1 DF
     Route: 048
     Dates: start: 20120208, end: 20130329
  3. INEXIUM [Concomitant]
     Dosage: 1 DF
     Route: 048
     Dates: start: 201205, end: 20130402
  4. LAMALINE [Concomitant]
     Dosage: 2 DF
     Route: 048
     Dates: start: 201205, end: 20130402
  5. LASILIX FAIBLE [Concomitant]
     Dosage: 1 DF
     Route: 048
     Dates: start: 201201, end: 20130402
  6. SERESTA [Concomitant]
     Dosage: 2 DF
     Route: 048
     Dates: start: 201205, end: 20130402
  7. STILNOX [Concomitant]
     Dosage: 1 DF
     Route: 048
     Dates: start: 20120208, end: 20130402
  8. TRIATEC [Concomitant]
     Dosage: 1 DF
     Route: 048
     Dates: start: 201201, end: 20130402
  9. FORLAX [Concomitant]
     Dosage: 1 DF
     Route: 048
     Dates: start: 201205, end: 20130402

REACTIONS (3)
  - Traumatic intracranial haemorrhage [Fatal]
  - Subdural haematoma [Fatal]
  - Drug interaction [Fatal]
